FAERS Safety Report 12951808 (Version 2)
Quarter: 2016Q4

REPORT INFORMATION
  Report Type: Report from Study
  Country: JP (occurrence: JP)
  Receive Date: 20161117
  Receipt Date: 20161223
  Transmission Date: 20170207
  Serious: Yes (Other)
  Sender: FDA-Public Use
  Company Number: JP-VIFOR (INTERNATIONAL) INC.-VIT-2016-07433

PATIENT
  Age: 74 Year
  Sex: Male
  Weight: 43.6 kg

DRUGS (13)
  1. RISUMIC [Concomitant]
     Active Substance: AMEZINIUM METILSULFATE
     Route: 048
     Dates: start: 20160712
  2. EPOETIN ALFA BS [Concomitant]
     Active Substance: ERYTHROPOIETIN
     Route: 065
     Dates: start: 20160811, end: 20160825
  3. SORBITOL. [Concomitant]
     Active Substance: SORBITOL
     Route: 048
  4. JUVELA [Concomitant]
     Active Substance: .ALPHA.-TOCOPHEROL\RETINOL
     Route: 048
  5. EPOETIN ALFA BS [Concomitant]
     Active Substance: ERYTHROPOIETIN
     Route: 065
     Dates: end: 20160811
  6. PURSENNID [Concomitant]
     Active Substance: SENNOSIDES A AND B
     Route: 048
  7. ROCEPHIN [Concomitant]
     Active Substance: CEFTRIAXONE SODIUM
     Indication: NEEDLE ISSUE
     Route: 042
     Dates: start: 20160906, end: 20160906
  8. RISUMIC [Concomitant]
     Active Substance: AMEZINIUM METILSULFATE
     Route: 048
     Dates: end: 20160712
  9. RIONA [Concomitant]
     Active Substance: FERRIC CITRATE ANHYDROUS
     Indication: HYPERPHOSPHATAEMIA
     Route: 048
     Dates: start: 20160906
  10. METHYCOBAL [Concomitant]
     Active Substance: METHYLCOBALAMIN
     Route: 048
  11. VELPHORO [Suspect]
     Active Substance: FERRIC OXYHYDROXIDE
     Indication: HYPERPHOSPHATAEMIA
     Route: 048
     Dates: start: 20160630, end: 20160906
  12. EPOETIN ALFA BS [Concomitant]
     Active Substance: ERYTHROPOIETIN
     Route: 065
     Dates: start: 20160825
  13. CHINESE MEDICINE [Concomitant]
     Active Substance: UNSPECIFIED INGREDIENT
     Indication: MUSCLE SPASMS
     Route: 048
     Dates: start: 2016

REACTIONS (3)
  - Rash [Recovering/Resolving]
  - Oral mucosal discolouration [Recovered/Resolved]
  - Product contamination microbial [Recovered/Resolved]

NARRATIVE: CASE EVENT DATE: 20160630
